FAERS Safety Report 16136333 (Version 1)
Quarter: 2019Q1

REPORT INFORMATION
  Report Type: Spontaneous
  Country: US (occurrence: US)
  Receive Date: 20190331
  Receipt Date: 20190331
  Transmission Date: 20190418
  Serious: Yes (Other)
  Sender: FDA-Public Use
  Company Number: US-009507513-1903USA011757

PATIENT
  Age: 24 Year
  Sex: Female

DRUGS (5)
  1. NUVARING [Suspect]
     Active Substance: ETHINYL ESTRADIOL\ETONOGESTREL
     Indication: CONTRACEPTION
  2. NUVARING [Suspect]
     Active Substance: ETHINYL ESTRADIOL\ETONOGESTREL
     Indication: EPILEPSY
     Dosage: 1 DOSAGE FORM, QM (1 RING FOR 3 WEEKS, THEN 1 WEEK RING FREE)
     Route: 067
     Dates: start: 2016
  3. ZONEGRAN [Concomitant]
     Active Substance: ZONISAMIDE
  4. VIMPAT [Concomitant]
     Active Substance: LACOSAMIDE
  5. KEPPRA [Concomitant]
     Active Substance: LEVETIRACETAM

REACTIONS (3)
  - Therapeutic response unexpected [Unknown]
  - Product use in unapproved indication [Unknown]
  - Seizure [Recovering/Resolving]

NARRATIVE: CASE EVENT DATE: 2016
